FAERS Safety Report 16090599 (Version 1)
Quarter: 2019Q1

REPORT INFORMATION
  Report Type: Spontaneous
  Country: US (occurrence: US)
  Receive Date: 20190215
  Receipt Date: 20190215
  Transmission Date: 20190418
  Serious: Yes (Other)
  Sender: FDA-Public Use
  Company Number: None

PATIENT
  Age: 74 Year
  Sex: Male
  Weight: 134.72 kg

DRUGS (1)
  1. ABIRATERONE 250MG [Suspect]
     Active Substance: ABIRATERONE
     Indication: PROSTATE CANCER
     Route: 048
     Dates: start: 201901, end: 201902

REACTIONS (4)
  - Product substitution issue [None]
  - Adverse event [None]
  - Insurance issue [None]
  - Prostatic specific antigen increased [None]

NARRATIVE: CASE EVENT DATE: 20190207
